FAERS Safety Report 6159602-7 (Version None)
Quarter: 2009Q2

REPORT INFORMATION
  Report Type: 
  Country: None (occurrence: None)
  Receive Date: 20090420
  Receipt Date: 20090409
  Transmission Date: 20091009
  Serious: Yes (Other)
  Sender: FDA-Public Use
  Company Number: GB-JNJFOC-20090402363

PATIENT
  Age: 54 Year
  Sex: Female

DRUGS (10)
  1. REMICADE [Suspect]
     Indication: RHEUMATOID ARTHRITIS
     Route: 042
  2. METHOTREXATE [Concomitant]
  3. PREDNISOLONE [Concomitant]
  4. ATENOLOL [Concomitant]
  5. CALCICHEW [Concomitant]
  6. CODEINE PHOSPHATE [Concomitant]
  7. ETIDRONATE DISODIUM [Concomitant]
  8. FOLIC ACID [Concomitant]
  9. LACTULOSE [Concomitant]
  10. ROFECOXIB [Concomitant]

REACTIONS (1)
  - SMALL CELL LUNG CANCER STAGE UNSPECIFIED [None]
